FAERS Safety Report 5513762-7 (Version None)
Quarter: 2007Q4

REPORT INFORMATION
  Report Type: 
  Country: None (occurrence: None)
  Receive Date: 20071106
  Receipt Date: 20060929
  Transmission Date: 20080405
  Serious: Yes (Other)
  Sender: FDA-Public Use
  Company Number: US-JNJFOC-20061000805

PATIENT
  Age: 76 Year
  Sex: Male

DRUGS (3)
  1. IBUPROFEN [Suspect]
     Indication: DRUG USE FOR UNKNOWN INDICATION
     Dosage: 1600 MG, 1 IN 1 DAY
     Dates: end: 20060922
  2. ASPIRIN [Suspect]
     Indication: DRUG USE FOR UNKNOWN INDICATION
     Dosage: 81 MG, 1 IN 1 DAY
     Dates: end: 20060922
  3. WARFARIN SODIUM [Suspect]
     Indication: DRUG USE FOR UNKNOWN INDICATION
     Dates: end: 20060901

REACTIONS (1)
  - GASTROINTESTINAL HAEMORRHAGE [None]
